FAERS Safety Report 5281224-0 (Version None)
Quarter: 2007Q1

REPORT INFORMATION
  Report Type: 
  Country: None (occurrence: None)
  Receive Date: 20070323
  Receipt Date: 20070306
  Transmission Date: 20070707
  Serious: Yes (Death, Hospitalization)
  Sender: FDA-Public Use
  Company Number: 2007VX000786

PATIENT
  Age: 80 Year
  Sex: Male

DRUGS (6)
  1. TASMAR [Suspect]
     Indication: PARKINSONISM
  2. ISOCOM [Concomitant]
  3. SIFROL [Concomitant]
  4. TRAZODONE HCL [Concomitant]
  5. SEROQUEL [Concomitant]
  6. AMANTADINE HCL [Concomitant]

REACTIONS (7)
  - ANAEMIA [None]
  - BLOOD CREATINE PHOSPHOKINASE INCREASED [None]
  - COMPARTMENT SYNDROME [None]
  - DEEP VEIN THROMBOSIS [None]
  - HEPATIC ENZYME INCREASED [None]
  - MULTI-ORGAN FAILURE [None]
  - MYOCARDIAL INFARCTION [None]
